FAERS Safety Report 4403945-1 (Version None)
Quarter: 2004Q3

REPORT INFORMATION
  Report Type: 
  Country: None (occurrence: None)
  Receive Date: 20040719
  Receipt Date: 20040609
  Transmission Date: 20050211
  Serious: Yes (Death, Hospitalization)
  Sender: FDA-Public Use
  Company Number: 2004-BP-03765RP

PATIENT
  Age: 56 Year
  Sex: Female

DRUGS (3)
  1. MICARDIS [Suspect]
     Indication: HYPERTENSION
     Dosage: (40 MG, 1 TA OD) PO
     Route: 048
     Dates: start: 20030301
  2. CATAPRES (CLONIDINE) (AMV) [Concomitant]
  3. APRESOLINE (HYDRALAZINE HYDROCHLORIDE) (AMV) [Concomitant]

REACTIONS (1)
  - REFUSAL OF TREATMENT BY RELATIVE [None]
